FAERS Safety Report 10151500 (Version 2)
Quarter: 2014Q3

REPORT INFORMATION
  Report Type: Spontaneous
  Country: BR (occurrence: BR)
  Receive Date: 20140503
  Receipt Date: 20140711
  Transmission Date: 20150326
  Serious: Yes (Other)
  Sender: FDA-Public Use
  Company Number: BR-ABBVIE-14K-020-1231769-00

PATIENT
  Sex: Male

DRUGS (4)
  1. KALETRA [Suspect]
     Active Substance: LOPINAVIR\RITONAVIR
     Indication: HIV INFECTION
  2. KALETRA [Suspect]
     Active Substance: LOPINAVIR\RITONAVIR
     Indication: ACQUIRED IMMUNODEFICIENCY SYNDROME
  3. 3TC [Concomitant]
     Active Substance: LAMIVUDINE
     Indication: ACQUIRED IMMUNODEFICIENCY SYNDROME
  4. TENOFOVIR [Concomitant]
     Active Substance: TENOFOVIR
     Indication: ACQUIRED IMMUNODEFICIENCY SYNDROME

REACTIONS (9)
  - Cough [Unknown]
  - Lymphadenopathy mediastinal [Not Recovered/Not Resolved]
  - Tuberculosis [Unknown]
  - Night sweats [Unknown]
  - Cytomegalovirus test positive [Unknown]
  - Lymphadenopathy [Not Recovered/Not Resolved]
  - Computerised tomogram thorax abnormal [Unknown]
  - Pyrexia [Recovered/Resolved]
  - Lung infection [Recovering/Resolving]
